FAERS Safety Report 15937719 (Version 2)
Quarter: 2020Q1

REPORT INFORMATION
  Report Type: Spontaneous
  Country: US (occurrence: US)
  Receive Date: 20190208
  Receipt Date: 20200227
  Transmission Date: 20200409
  Serious: No
  Sender: FDA-Public Use
  Company Number: US-AEGERION PHARMACEUTICAL, INC-AEGR004107

PATIENT
  Sex: Male
  Weight: 104.31 kg

DRUGS (1)
  1. MYALEPT [Suspect]
     Active Substance: METRELEPTIN
     Indication: LIPODYSTROPHY ACQUIRED
     Dosage: 2.5 MG, QD
     Route: 058
     Dates: start: 201901

REACTIONS (5)
  - Blood glucose decreased [Unknown]
  - Vision blurred [Unknown]
  - Coordination abnormal [Unknown]
  - Decreased appetite [Unknown]
  - Headache [Recovered/Resolved]
